FAERS Safety Report 17188109 (Version 1)
Quarter: 2019Q4

REPORT INFORMATION
  Report Type: Report from Study
  Country: BG (occurrence: BG)
  Receive Date: 20191221
  Receipt Date: 20191221
  Transmission Date: 20200122
  Serious: Yes (Other)
  Sender: FDA-Public Use
  Company Number: BG-ACCORD-165629

PATIENT
  Age: 63 Year
  Sex: Male
  Weight: 76 kg

DRUGS (4)
  1. FLUOROURACIL. [Suspect]
     Active Substance: FLUOROURACIL
     Indication: COLORECTAL CANCER METASTATIC
     Dosage: UNK UNK, QCY, LAST ADMINISTRATION: 18-JUL-2018
     Route: 042
     Dates: start: 20180718
  2. AFLIBERCEPT [Suspect]
     Active Substance: AFLIBERCEPT
     Indication: COLORECTAL CANCER METASTATIC
     Dosage: UNK UNK, QCY, LAST ADMINISTRATION: 18-JUL-2018
     Route: 042
     Dates: start: 20180718
  3. IRINOTECAN [Suspect]
     Active Substance: IRINOTECAN
     Indication: COLORECTAL CANCER METASTATIC
     Dosage: LAST ADMINISTRATION: 18-JUL-2018, UNK UNK, QCY
     Route: 042
     Dates: start: 20180718
  4. FOLINIC ACID [Suspect]
     Active Substance: LEUCOVORIN
     Indication: COLORECTAL CANCER METASTATIC
     Dosage: UNK UNK, QCY, LAST ADMINISTRATION: 18-JUL-2018
     Route: 042
     Dates: start: 20180718

REACTIONS (7)
  - Diarrhoea [Recovered/Resolved]
  - Fatigue [Recovered/Resolved]
  - Epistaxis [Recovered/Resolved]
  - Leukopenia [Recovered/Resolved]
  - Pruritus [Recovered/Resolved]
  - Neutropenia [Recovered/Resolved]
  - Stomatitis [Recovered/Resolved]

NARRATIVE: CASE EVENT DATE: 20180808
